FAERS Safety Report 10129225 (Version 1)
Quarter: 2014Q2

REPORT INFORMATION
  Report Type: Spontaneous
  Country: US (occurrence: None)
  Receive Date: 20140425
  Receipt Date: 20140425
  Transmission Date: 20141212
  Serious: Yes (Life-Threatening)
  Sender: FDA-Public Use
  Company Number: None

PATIENT
  Age: 73 Year
  Sex: Male

DRUGS (10)
  1. XTANDI [Suspect]
     Route: 048
     Dates: start: 20140228
  2. POLYETHYLGLYCOL [Concomitant]
  3. AZOPT [Concomitant]
  4. OMEPRAZOLE [Concomitant]
  5. PANTOPRAZOLE [Concomitant]
  6. TAMSULOSIN [Concomitant]
  7. AMLODIPINE [Concomitant]
  8. METOPROLOL [Concomitant]
  9. APAP/COD [Concomitant]
  10. ONDANSETRON [Concomitant]

REACTIONS (4)
  - Dyspnoea [None]
  - Vision blurred [None]
  - Pain in extremity [None]
  - Feeling hot [None]
